FAERS Safety Report 8313419-3 (Version None)
Quarter: 2012Q2

REPORT INFORMATION
  Report Type: 
  Country: None (occurrence: None)
  Receive Date: 20120426
  Receipt Date: 20120416
  Transmission Date: 20120825
  Serious: Yes (Hospitalization)
  Sender: FDA-Public Use
  Company Number: CO-JNJFOC-20120407983

PATIENT
  Sex: Male
  Weight: 59 kg

DRUGS (2)
  1. XARELTO [Suspect]
     Indication: ATRIAL FIBRILLATION
     Route: 048
     Dates: start: 20120301, end: 20120410
  2. XARELTO [Suspect]
     Route: 048
     Dates: start: 20120413

REACTIONS (2)
  - URINARY TRACT INFECTION [None]
  - HAEMATURIA [None]
